FAERS Safety Report 15043709 (Version 2)
Quarter: 2019Q1

REPORT INFORMATION
  Report Type: Spontaneous
  Country: JP (occurrence: JP)
  Receive Date: 20180621
  Receipt Date: 20190116
  Transmission Date: 20190417
  Serious: Yes (Life-Threatening, Hospitalization, Other)
  Sender: FDA-Public Use
  Company Number: JP-BAYER-2018-114707

PATIENT
  Age: 66 Year
  Sex: Male
  Weight: 69 kg

DRUGS (4)
  1. LOXOPROFEN [Suspect]
     Active Substance: LOXOPROFEN
     Indication: COLORECTAL CANCER
     Dosage: ADEQUATE DOSE
     Route: 048
     Dates: end: 20180611
  2. STIVARGA [Suspect]
     Active Substance: REGORAFENIB
     Indication: COLORECTAL CANCER RECURRENT
     Dosage: DAILY DOSE 3 DF, 3 WEEKS ON 1 WEEK OFF
     Route: 048
     Dates: start: 20180522, end: 20180611
  3. STIVARGA [Suspect]
     Active Substance: REGORAFENIB
     Indication: COLORECTAL CANCER RECURRENT
     Dosage: DAILY DOSE 2 DF, 2 WEEKS ON 1 WEEK OFF
     Route: 048
     Dates: start: 20180828, end: 20181001
  4. TRAMADOL HYDROCHLORIDE. [Suspect]
     Active Substance: TRAMADOL HYDROCHLORIDE
     Indication: BACK PAIN
     Dosage: UNK
     Route: 048

REACTIONS (8)
  - Duodenal perforation [Recovering/Resolving]
  - Pyrexia [None]
  - Gastric mucosal lesion [None]
  - Tumour cavitation [None]
  - Abdominal pain upper [Recovering/Resolving]
  - Peritonitis [Recovering/Resolving]
  - Metastases to lung [None]
  - Dysphonia [Recovering/Resolving]

NARRATIVE: CASE EVENT DATE: 20180529
